FAERS Safety Report 8109620 (Version 2)
Quarter: 2013Q2

REPORT INFORMATION
  Report Type: Spontaneous
  Country: JP (occurrence: JP)
  Receive Date: 20110826
  Receipt Date: 20130419
  Transmission Date: 20140414
  Serious: Yes (Hospitalization)
  Sender: FDA-Public Use
  Company Number: JP-ABBOTT-11P-087-0849295-00

PATIENT
  Age: 41 Year
  Sex: Male
  Weight: 75 kg

DRUGS (6)
  1. HUMIRA 40 MG/ 0.8 ML PRE-FILLED SYRINGE [Suspect]
     Indication: CROHN^S DISEASE
     Route: 058
     Dates: start: 20101203, end: 20101203
  2. HUMIRA 40 MG/ 0.8 ML PRE-FILLED SYRINGE [Suspect]
     Dates: start: 20101216, end: 20101216
  3. HUMIRA 40 MG/ 0.8 ML PRE-FILLED SYRINGE [Suspect]
     Dates: start: 20101228
  4. FAMOTIDINE [Concomitant]
     Indication: GASTRITIS
     Route: 048
  5. VALSARTAN [Concomitant]
     Indication: HYPERTENSION
     Route: 048
  6. LOXOPROFEN SODIUM [Concomitant]
     Indication: PAIN
     Dosage: 60 MG/WEEK
     Route: 048

REACTIONS (3)
  - Ileus [Recovered/Resolved]
  - Dehydration [Unknown]
  - Anastomotic stenosis [Unknown]
